FAERS Safety Report 4970537-5 (Version None)
Quarter: 2006Q2

REPORT INFORMATION
  Report Type: 
  Country: None (occurrence: None)
  Receive Date: 20060406
  Receipt Date: 20060321
  Transmission Date: 20061013
  Serious: Yes (Other)
  Sender: FDA-Public Use
  Company Number: DSA_27937_2006

PATIENT
  Age: 20 Year
  Sex: Female

DRUGS (2)
  1. TAVOR /00273201/ [Suspect]
     Dosage: 50 MG ONCE PO
     Route: 048
     Dates: start: 20060321, end: 20060321
  2. DIAZEPAM [Suspect]
     Dosage: 250 MG ONCE PO
     Route: 048
     Dates: start: 20060321, end: 20060321

REACTIONS (4)
  - FATIGUE [None]
  - MULTIPLE DRUG OVERDOSE INTENTIONAL [None]
  - SUICIDE ATTEMPT [None]
  - VOMITING [None]
